FAERS Safety Report 6708378-0 (Version None)
Quarter: 2010Q2

REPORT INFORMATION
  Report Type: 
  Country: None (occurrence: None)
  Receive Date: 20100503
  Receipt Date: 20091112
  Transmission Date: 20101027
  Serious: No
  Sender: FDA-Public Use
  Company Number: US-ASTRAZENECA-2009SE26184

PATIENT
  Sex: Male

DRUGS (5)
  1. NEXIUM [Suspect]
     Route: 048
     Dates: start: 20090901
  2. ALLOPURINOL [Concomitant]
  3. ATENOLOL [Concomitant]
  4. LEVOXYL [Concomitant]
  5. ASPIRIN [Concomitant]

REACTIONS (2)
  - DRY EYE [None]
  - VISION BLURRED [None]
